FAERS Safety Report 11626728 (Version 3)
Quarter: 2017Q4

REPORT INFORMATION
  Report Type: Spontaneous
  Country: GB (occurrence: GB)
  Receive Date: 20151013
  Receipt Date: 20171227
  Transmission Date: 20180320
  Serious: Yes (Death, Hospitalization, Disabling)
  Sender: FDA-Public Use
  Company Number: GB-SA-2015SA159566

PATIENT
  Age: 62 Year
  Sex: Female

DRUGS (9)
  1. ALLOPURINOL. [Suspect]
     Active Substance: ALLOPURINOL
     Indication: B-CELL LYMPHOMA
     Route: 048
     Dates: start: 20031119
  2. DOXORUBICIN [Concomitant]
     Active Substance: DOXORUBICIN
     Dates: start: 199910
  3. PREDNISONE. [Concomitant]
     Active Substance: PREDNISONE
     Dates: start: 199910
  4. PREDNISONE. [Concomitant]
     Active Substance: PREDNISONE
     Dates: start: 200101
  5. DOXORUBICIN [Concomitant]
     Active Substance: DOXORUBICIN
     Dates: start: 200101
  6. CYCLOPHOSPHAMIDE. [Concomitant]
     Active Substance: CYCLOPHOSPHAMIDE
     Dates: start: 199910
  7. CYCLOPHOSPHAMIDE. [Concomitant]
     Active Substance: CYCLOPHOSPHAMIDE
     Dates: start: 200101
  8. FLUDARABINE PHOSPHATE. [Suspect]
     Active Substance: FLUDARABINE PHOSPHATE
     Indication: B-CELL LYMPHOMA
     Dosage: FOR 5 DAYS
     Route: 048
     Dates: start: 20031119, end: 20031123
  9. MABTHERA [Suspect]
     Active Substance: RITUXIMAB
     Indication: B-CELL LYMPHOMA
     Dosage: 1 CYCLE, ONCE WEEKLY FOR 4 DOSES
     Route: 042
     Dates: start: 20020606, end: 20020627

REACTIONS (2)
  - Non-Hodgkin^s lymphoma [Fatal]
  - Lower respiratory tract infection [Fatal]

NARRATIVE: CASE EVENT DATE: 20031208
